FAERS Safety Report 8557056-4 (Version None)
Quarter: 2012Q3

REPORT INFORMATION
  Report Type: 
  Country: None (occurrence: None)
  Receive Date: 20120801
  Receipt Date: 20120720
  Transmission Date: 20120928
  Serious: Yes (Hospitalization)
  Sender: FDA-Public Use
  Company Number: FR-JNJFOC-20120713946

PATIENT
  Age: 68 Year
  Sex: Female

DRUGS (9)
  1. IBUPROFEN [Suspect]
     Route: 048
     Dates: start: 20120606, end: 20120606
  2. NICARDIPINE HCL [Concomitant]
     Indication: PRODUCT USED FOR UNKNOWN INDICATION
     Dosage: LOXEN L.P.50 MG
     Route: 048
  3. LITHIUM CARBONATE [Concomitant]
     Indication: PRODUCT USED FOR UNKNOWN INDICATION
     Dosage: TERALITHE L.P 400MG
     Route: 048
  4. PRIMPERAN TAB [Suspect]
     Indication: PRODUCT USED FOR UNKNOWN INDICATION
     Route: 048
     Dates: start: 20120608, end: 20120608
  5. BIPERIDYS [Suspect]
     Indication: PRODUCT USED FOR UNKNOWN INDICATION
     Dosage: 20 MG
     Route: 048
     Dates: start: 20120606, end: 20120606
  6. IBUPROFEN [Suspect]
     Indication: DENTAL CARE
     Route: 048
     Dates: start: 20120605
  7. TRAMADOL HCL [Suspect]
     Indication: DENTAL CARE
     Route: 048
     Dates: start: 20120608, end: 20120608
  8. LAMALINE [Suspect]
     Indication: PRODUCT USED FOR UNKNOWN INDICATION
  9. FLUOXETINE HCL [Concomitant]
     Indication: PRODUCT USED FOR UNKNOWN INDICATION
     Route: 065

REACTIONS (1)
  - ERYTHEMA MULTIFORME [None]
